FAERS Safety Report 19422729 (Version 1)
Quarter: 2021Q2

REPORT INFORMATION
  Report Type: Spontaneous
  Country: US (occurrence: US)
  Receive Date: 20210616
  Receipt Date: 20210616
  Transmission Date: 20210717
  Serious: Yes (Disabling)
  Sender: FDA-Public Use
  Company Number: None

PATIENT
  Age: 74 Year
  Sex: Male
  Weight: 73.48 kg

DRUGS (1)
  1. PRALUENT [Suspect]
     Active Substance: ALIROCUMAB
     Indication: BLOOD CHOLESTEROL INCREASED
     Dosage: FREQUENCY: EVERY 2 WEEKS
     Route: 058
     Dates: start: 20210104, end: 20210318

REACTIONS (3)
  - Drug ineffective [None]
  - Nasal polyps [None]
  - Nasal congestion [None]

NARRATIVE: CASE EVENT DATE: 20210104
